FAERS Safety Report 19313127 (Version 1)
Quarter: 2021Q2

REPORT INFORMATION
  Report Type: Spontaneous
  Country: US (occurrence: US)
  Receive Date: 20210527
  Receipt Date: 20210527
  Transmission Date: 20210717
  Serious: Yes (Life-Threatening, Hospitalization, Disabling, Other)
  Sender: FDA-Public Use
  Company Number: None

PATIENT
  Age: 37 Year
  Sex: Male
  Weight: 84.82 kg

DRUGS (1)
  1. GADOLINIUM [Suspect]
     Active Substance: GADOLINIUM

REACTIONS (6)
  - Feeling abnormal [None]
  - Pain [None]
  - Burning sensation [None]
  - Toxicity to various agents [None]
  - Poisoning [None]
  - Neuropathy peripheral [None]

NARRATIVE: CASE EVENT DATE: 20210421
